FAERS Safety Report 8157988-5 (Version None)
Quarter: 2012Q1

REPORT INFORMATION
  Report Type: 
  Country: None (occurrence: None)
  Receive Date: 20120222
  Receipt Date: 20120212
  Transmission Date: 20120608
  Serious: Yes (Other)
  Sender: FDA-Public Use
  Company Number: PHHY2012MX013060

PATIENT
  Sex: Male

DRUGS (9)
  1. RITALIN [Suspect]
     Dosage: 5 MG, UNK
  2. MESTINON [Concomitant]
     Dosage: 220 MG, QD
  3. RITALIN [Suspect]
     Dosage: 5 MG, QD
  4. RITALIN [Suspect]
     Dosage: 10 MG, UNK
  5. RITALIN [Suspect]
     Indication: ATTENTION DEFICIT/HYPERACTIVITY DISORDER
     Dosage: 10 MG, QD
  6. METICORTELONE [Concomitant]
     Indication: MYASTHENIA GRAVIS
     Dosage: 7 ML, QD
  7. PREDNISOLONE [Concomitant]
  8. RITALIN LA [Suspect]
     Indication: ATTENTION DEFICIT/HYPERACTIVITY DISORDER
     Dosage: 20 MG, QD
     Dates: start: 20090201, end: 20111101
  9. STRATTERA [Concomitant]
     Indication: ATTENTION DEFICIT/HYPERACTIVITY DISORDER
     Dosage: 10 MG, QD

REACTIONS (4)
  - SOMNOLENCE [None]
  - MYASTHENIA GRAVIS [None]
  - EYELID PTOSIS [None]
  - DRUG INEFFECTIVE [None]
